FAERS Safety Report 4568668-7 (Version None)
Quarter: 2005Q1

REPORT INFORMATION
  Report Type: 
  Country: None (occurrence: None)
  Receive Date: 20050202
  Receipt Date: 20041126
  Transmission Date: 20050727
  Serious: Yes (Hospitalization)
  Sender: FDA-Public Use
  Company Number: DE-MERCK-0411DEU00521

PATIENT

DRUGS (1)
  1. ALENDRONATE SODIUM [Suspect]
     Route: 048

REACTIONS (1)
  - JEJUNAL ULCER [None]
